FAERS Safety Report 8496928-6 (Version None)
Quarter: 2012Q3

REPORT INFORMATION
  Report Type: 
  Country: None (occurrence: None)
  Receive Date: 20120709
  Receipt Date: 20120628
  Transmission Date: 20120928
  Serious: Yes (Hospitalization, Other)
  Sender: FDA-Public Use
  Company Number: US-ELI_LILLY_AND_COMPANY-US201201006068

PATIENT
  Age: 60 Year
  Sex: Female
  Weight: 72.109 kg

DRUGS (12)
  1. AMLODIPINE [Concomitant]
     Dosage: 10 MG, QD
  2. TRAZODONE HCL [Concomitant]
     Dosage: 100 MG, QOD
  3. CYMBALTA [Concomitant]
     Dosage: 30 MG, UNK
  4. LORTAB [Concomitant]
     Dosage: UNK, QD
  5. FORTEO [Suspect]
     Dosage: 20 UG, QD
     Route: 058
  6. MOBIC [Concomitant]
     Dosage: UNK, QD
  7. QUINAPRIL [Concomitant]
     Dosage: 20 MG, QD
  8. FORTEO [Suspect]
     Indication: OSTEOPOROSIS
     Dosage: 20 UG, QD
     Route: 058
     Dates: start: 20111101
  9. FLEXERIL [Concomitant]
     Dosage: 10 MG, QD
  10. TRAMADOL HCL [Concomitant]
     Indication: PAIN
  11. VALIUM [Concomitant]
     Dosage: 10 MG, UNK
  12. PREMARIN [Concomitant]
     Dosage: UNK, QD

REACTIONS (8)
  - BREAST CANCER [None]
  - DEVICE MALFUNCTION [None]
  - VOMITING [None]
  - PAIN [None]
  - FALL [None]
  - FATIGUE [None]
  - HOSPITALISATION [None]
  - MALAISE [None]
